FAERS Safety Report 10031584 (Version 5)
Quarter: 2014Q3

REPORT INFORMATION
  Report Type: Spontaneous
  Country: US (occurrence: US)
  Receive Date: 20140324
  Receipt Date: 20140815
  Transmission Date: 20150326
  Serious: No
  Sender: FDA-Public Use
  Company Number: US-PFIZER INC-2014080964

PATIENT
  Age: 52 Year
  Sex: Male
  Weight: 119.73 kg

DRUGS (3)
  1. SUTENT [Suspect]
     Active Substance: SUNITINIB MALATE
     Dosage: 37.5 MG, CYCLIC
  2. SUTENT [Suspect]
     Active Substance: SUNITINIB MALATE
     Dosage: 37.5 MG, UNK
     Dates: start: 20140422
  3. SUTENT [Suspect]
     Active Substance: SUNITINIB MALATE
     Dosage: 50 MG, CYCLIC (FIRST CYCLE OF SUTENT 50MG DAILY)

REACTIONS (11)
  - Dyspepsia [Unknown]
  - Abdominal pain [Unknown]
  - Amylase increased [Unknown]
  - Stomatitis [Unknown]
  - Diarrhoea [Recovering/Resolving]
  - Fungal infection [Not Recovered/Not Resolved]
  - Lipase increased [Unknown]
  - Nausea [Recovering/Resolving]
  - Fatigue [Recovering/Resolving]
  - Sleep disorder [Unknown]
  - Headache [Unknown]
